FAERS Safety Report 17939495 (Version 1)
Quarter: 2020Q2

REPORT INFORMATION
  Report Type: Spontaneous
  Country: CA (occurrence: CA)
  Receive Date: 20200625
  Receipt Date: 20200625
  Transmission Date: 20200714
  Serious: Yes (Death)
  Sender: FDA-Public Use
  Company Number: CA-ROCHE-2627026

PATIENT
  Age: 66 Year
  Sex: Female
  Weight: 51 kg

DRUGS (19)
  1. EGCG [Concomitant]
     Active Substance: EPIGALLOCATECHIN GALLATE
     Route: 065
  2. FOLIC ACID. [Concomitant]
     Active Substance: FOLIC ACID
  3. VITAMIN B12 [Concomitant]
     Active Substance: CYANOCOBALAMIN
  4. ASPERGILLUS NIGER VAR NIGER [Concomitant]
     Active Substance: ASPERGILLUS NIGER VAR. NIGER
  5. MILK THISTLE [SILYBUM MARIANUM] [Concomitant]
     Active Substance: DIETARY SUPPLEMENT\HERBALS\MILK THISTLE
     Route: 065
  6. NUX VOMICA [STRYCHNOS NUX-VOMICA] [Concomitant]
  7. OLIVE LEAF EXTRACT [Concomitant]
  8. OMEGA 3 [DOCOSAHEXAENOIC ACID;EICOSAPENTAENOIC ACID] [Concomitant]
     Active Substance: DOCONEXENT\ICOSAPENT
  9. RESVERATROL [Concomitant]
     Active Substance: DIETARY SUPPLEMENT\RESVERATROL
  10. BIOTIN [Concomitant]
     Active Substance: BIOTIN
  11. CALCIUM [Concomitant]
     Active Substance: CALCIUM
  12. CURCUMIN [Concomitant]
     Active Substance: CURCUMIN
  13. ZOLEDRONIC ACID [Suspect]
     Active Substance: ZOLEDRONIC ACID
     Indication: PRODUCT USED FOR UNKNOWN INDICATION
     Route: 065
  14. BEVACIZUMAB. [Suspect]
     Active Substance: BEVACIZUMAB
     Indication: LUNG ADENOCARCINOMA
     Route: 042
  15. ASHWAGANDHA [WITHANIA SOMNIFERA] [Concomitant]
     Active Substance: HERBALS
  16. QUERCETIN [Concomitant]
     Active Substance: QUERCETIN
  17. VITAMIN D3 [Concomitant]
     Active Substance: CHOLECALCIFEROL
  18. SELENOMETHIONINE. [Concomitant]
     Active Substance: SELENOMETHIONINE
  19. TURKEY TAIL MUSHROOM [Concomitant]

REACTIONS (6)
  - Weight increased [Fatal]
  - Herpes zoster [Fatal]
  - Musculoskeletal stiffness [Fatal]
  - Ageusia [Fatal]
  - Death [Fatal]
  - Myalgia [Fatal]
